FAERS Safety Report 4305395-5 (Version None)
Quarter: 2004Q1

REPORT INFORMATION
  Report Type: 
  Country: None (occurrence: None)
  Receive Date: 20040226
  Receipt Date: 20031003
  Transmission Date: 20041129
  Serious: No
  Sender: FDA-Public Use
  Company Number: US-BRISTOL-MYERS SQUIBB COMPANY-12401287

PATIENT

DRUGS (1)
  1. TAXOL [Suspect]

REACTIONS (2)
  - ACCIDENTAL EXPOSURE [None]
  - PARAESTHESIA [None]
